FAERS Safety Report 11617064 (Version 1)
Quarter: 2015Q4

REPORT INFORMATION
  Report Type: Report from Study
  Country: VE (occurrence: VE)
  Receive Date: 20151009
  Receipt Date: 20151009
  Transmission Date: 20160304
  Serious: Yes (Death, Hospitalization)
  Sender: FDA-Public Use
  Company Number: PHHY2015VE121570

PATIENT
  Age: 55 Year
  Sex: Female

DRUGS (1)
  1. TASIGNA [Suspect]
     Active Substance: NILOTINIB
     Indication: CHRONIC MYELOID LEUKAEMIA
     Dosage: 800 MG, QD
     Route: 048
     Dates: start: 201409

REACTIONS (5)
  - Hypersensitivity [Unknown]
  - General physical health deterioration [Unknown]
  - Death [Fatal]
  - Speech disorder [Unknown]
  - Platelet count increased [Unknown]

NARRATIVE: CASE EVENT DATE: 20140929
